FAERS Safety Report 10867354 (Version 1)
Quarter: 2015Q1

REPORT INFORMATION
  Report Type: Spontaneous
  Country: US (occurrence: None)
  Receive Date: 20150220
  Receipt Date: 20150220
  Transmission Date: 20150721
  Serious: No
  Sender: FDA-Public Use
  Company Number: None

PATIENT
  Age: 64 Year
  Sex: Male
  Weight: 99.1 kg

DRUGS (1)
  1. VARENICLINE [Suspect]
     Active Substance: VARENICLINE
     Indication: SMOKING CESSATION THERAPY
     Route: 048
     Dates: start: 20141001, end: 20150204

REACTIONS (6)
  - Apathy [None]
  - Depression [None]
  - Anxiety [None]
  - Emotional disorder [None]
  - Asthenia [None]
  - Irritability [None]

NARRATIVE: CASE EVENT DATE: 20150218
